FAERS Safety Report 25836997 (Version 1)
Quarter: 2025Q3

REPORT INFORMATION
  Report Type: Report from Study
  Country: US (occurrence: US)
  Receive Date: 20250923
  Receipt Date: 20250923
  Transmission Date: 20251020
  Serious: Yes (Hospitalization)
  Sender: MYLAN
  Company Number: US-MYLANLABS-2025M1080597

PATIENT

DRUGS (4)
  1. APIXABAN [Suspect]
     Active Substance: APIXABAN
     Indication: Prophylaxis
  2. APIXABAN [Suspect]
     Active Substance: APIXABAN
     Route: 048
  3. APIXABAN [Suspect]
     Active Substance: APIXABAN
     Route: 048
  4. APIXABAN [Suspect]
     Active Substance: APIXABAN

REACTIONS (1)
  - Drug ineffective [Unknown]
